FAERS Safety Report 10939887 (Version 2)
Quarter: 2015Q2

REPORT INFORMATION
  Report Type: Spontaneous
  Country: US (occurrence: US)
  Receive Date: 20150322
  Receipt Date: 20150526
  Transmission Date: 20150821
  Serious: Yes (Other)
  Sender: FDA-Public Use
  Company Number: US-JNJFOC-20141004973

PATIENT
  Sex: Male

DRUGS (2)
  1. RISPERDAL M-TAB [Suspect]
     Active Substance: RISPERIDONE
     Indication: DRUG THERAPY
     Route: 048
     Dates: start: 200804, end: 20140210
  2. RISPERDAL M-TAB [Suspect]
     Active Substance: RISPERIDONE
     Indication: DRUG THERAPY
     Route: 048

REACTIONS (5)
  - Emotional disorder [Unknown]
  - Extrapyramidal disorder [Unknown]
  - Tardive dyskinesia [Unknown]
  - Parkinsonism [Unknown]
  - Gynaecomastia [Unknown]
